FAERS Safety Report 9419957 (Version 1)
Quarter: 2013Q3

REPORT INFORMATION
  Report Type: Spontaneous
  Country: US (occurrence: None)
  Receive Date: 20130723
  Receipt Date: 20130723
  Transmission Date: 20140515
  Serious: Yes (Disabling)
  Sender: FDA-Public Use
  Company Number: None

PATIENT
  Age: 68 Year
  Sex: Male
  Weight: 114.31 kg

DRUGS (2)
  1. LEVOFLOXACIN [Suspect]
     Indication: PROSTATE INFECTION
     Route: 041
     Dates: start: 20111101, end: 20111111
  2. LEVAQUIN [Suspect]
     Route: 048
     Dates: start: 20111112, end: 20111126

REACTIONS (1)
  - Investigation [None]
